FAERS Safety Report 15331315 (Version 2)
Quarter: 2020Q1

REPORT INFORMATION
  Report Type: Report from Study
  Country: GB (occurrence: GB)
  Receive Date: 20180829
  Receipt Date: 20200312
  Transmission Date: 20200409
  Serious: Yes (Other)
  Sender: FDA-Public Use
  Company Number: PHHY2018GB078811

PATIENT
  Age: 10 Year
  Sex: Female
  Weight: 33.92 kg

DRUGS (5)
  1. MOVICOL PAEDIATRIC PLAIN [Concomitant]
     Indication: CONSTIPATION
     Dosage: UNK
     Route: 048
  2. TRAMETINIB [Suspect]
     Active Substance: TRAMETINIB
     Indication: OPTIC GLIOMA
     Dosage: 0.025 MG/KG, QD
     Route: 048
     Dates: start: 20171124, end: 20180807
  3. MELATONIN [Concomitant]
     Active Substance: MELATONIN
     Indication: SLEEP DISORDER
     Dosage: UNK
     Route: 048
  4. CHLORPHENAMINE [Concomitant]
     Active Substance: CHLORPHENIRAMINE MALEATE
     Indication: PRURITUS
     Dosage: UNK
     Route: 048
     Dates: start: 20180514
  5. PIZOTIFEN [Concomitant]
     Active Substance: PIZOTYLINE
     Indication: MIGRAINE
     Dosage: UNK
     Route: 048

REACTIONS (3)
  - Detachment of retinal pigment epithelium [Recovering/Resolving]
  - Product use in unapproved indication [Unknown]
  - Retinopathy [Recovering/Resolving]

NARRATIVE: CASE EVENT DATE: 20180806
